FAERS Safety Report 9563998 (Version 2)
Quarter: 2013Q4

REPORT INFORMATION
  Report Type: Spontaneous
  Country: US (occurrence: US)
  Receive Date: 20130928
  Receipt Date: 20131001
  Transmission Date: 20140711
  Serious: Yes (Death)
  Sender: FDA-Public Use
  Company Number: US-ROCHE-1282534

PATIENT
  Sex: Female
  Weight: 52.66 kg

DRUGS (8)
  1. XELODA [Suspect]
     Indication: BREAST CANCER
     Dosage: 14 DAYS ON, 7 DAYS OFF
     Route: 065
     Dates: start: 20130514, end: 20130818
  2. DEXAMETHASONE [Concomitant]
     Indication: FATIGUE
     Route: 048
  3. DIAZEPAM [Concomitant]
  4. LORAZEPAM [Concomitant]
     Indication: INSOMNIA
     Route: 048
  5. OXYCODONE [Concomitant]
     Indication: PAIN
     Route: 048
  6. WELLBUTRIN [Concomitant]
  7. DOXYCYCLINE [Concomitant]
     Indication: RASH
     Route: 048
  8. GABAPENTIN [Concomitant]
     Indication: NEUROPATHY PERIPHERAL
     Route: 048

REACTIONS (3)
  - Breast cancer metastatic [Fatal]
  - Metastases to lung [Fatal]
  - Metastases to liver [Fatal]
